FAERS Safety Report 6604039-7 (Version None)
Quarter: 2010Q1

REPORT INFORMATION
  Report Type: 
  Country: None (occurrence: None)
  Receive Date: 20100226
  Receipt Date: 20090422
  Transmission Date: 20100710
  Serious: No
  Sender: FDA-Public Use
  Company Number: A0780138A

PATIENT
  Age: 39 Year
  Sex: Female

DRUGS (6)
  1. LAMICTAL CD [Suspect]
     Indication: BIPOLAR DISORDER
     Dosage: 100MG THREE TIMES PER DAY
     Route: 048
     Dates: start: 20040101, end: 20090401
  2. ACYCLOVIR [Suspect]
     Indication: GENITAL HERPES
     Dosage: 2CAP TWICE PER DAY
     Route: 048
     Dates: start: 19970101
  3. VITAMIN E [Concomitant]
  4. VITAMIN B-12 [Concomitant]
  5. IRON [Concomitant]
  6. LITHIUM [Concomitant]

REACTIONS (5)
  - EMOTIONAL DISTRESS [None]
  - GENITAL HERPES [None]
  - IRRITABILITY [None]
  - MOOD ALTERED [None]
  - STRESS [None]
